FAERS Safety Report 24681998 (Version 1)
Quarter: 2024Q4

REPORT INFORMATION
  Report Type: Report from Study
  Country: DE (occurrence: DE)
  Receive Date: 20241130
  Receipt Date: 20241130
  Transmission Date: 20250115
  Serious: Yes (Hospitalization)
  Sender: ABBVIE
  Company Number: DE-ABBVIE-6023992

PATIENT
  Age: 71 Year
  Sex: Female

DRUGS (2)
  1. FOSCARBIDOPA\FOSLEVODOPA [Suspect]
     Active Substance: FOSCARBIDOPA\FOSLEVODOPA
     Indication: Parkinson^s disease
     Dosage: CRN: 0,18ML/H, CR: 0,23ML/H, CRH: 0,25 ML/H, ED:0,15 ML/H
     Route: 058
     Dates: start: 20241022, end: 202411
  2. FOSCARBIDOPA\FOSLEVODOPA [Suspect]
     Active Substance: FOSCARBIDOPA\FOSLEVODOPA
     Dosage: CRN: 0,27ML/H, CR: 0,38 ML/H,CRH: 0,40 ML/H, ED: 0,15 ML/H
     Route: 058
     Dates: start: 202411

REACTIONS (3)
  - Movement disorder [Not Recovered/Not Resolved]
  - Hypokinesia [Recovering/Resolving]
  - On and off phenomenon [Not Recovered/Not Resolved]

NARRATIVE: CASE EVENT DATE: 20240101
